FAERS Safety Report 9558527 (Version 2)
Quarter: 2013Q4

REPORT INFORMATION
  Report Type: Spontaneous
  Country: US (occurrence: US)
  Receive Date: 20130926
  Receipt Date: 20131002
  Transmission Date: 20140711
  Serious: Yes (Death, Hospitalization, Other)
  Sender: FDA-Public Use
  Company Number: US-BAXTER-2013BAX036986

PATIENT
  Age: 85 Year
  Sex: Male

DRUGS (1)
  1. DIANEAL LOW CALCIUM [Suspect]
     Indication: PERITONEAL DIALYSIS
     Route: 033
     Dates: start: 201301, end: 20130907

REACTIONS (5)
  - Pneumonia aspiration [Fatal]
  - Carbon monoxide diffusing capacity decreased [Unknown]
  - Multi-organ failure [Unknown]
  - Pneumonia [Unknown]
  - Hypotension [Unknown]
